FAERS Safety Report 4363714-8 (Version None)
Quarter: 2004Q2

REPORT INFORMATION
  Report Type: 
  Country: None (occurrence: None)
  Receive Date: 20040524
  Receipt Date: 20040512
  Transmission Date: 20050107
  Serious: Yes (Other)
  Sender: FDA-Public Use
  Company Number: US-ROCHE-367697

PATIENT
  Age: 50 Year
  Sex: Male
  Weight: 86.2 kg

DRUGS (12)
  1. PEG-INTERFERON ALFA 2A (RO 25-8310) [Suspect]
     Route: 058
     Dates: start: 20010629
  2. PEG-INTERFERON ALFA 2A (RO 25-8310) [Suspect]
     Route: 058
     Dates: end: 20040401
  3. RIBAVIRIN [Suspect]
     Route: 048
     Dates: start: 20010629
  4. ST JOHN'S WORT [Concomitant]
     Dates: start: 20010615
  5. MULTI-VITAMINS [Concomitant]
     Dates: start: 20010615
  6. GINSENG [Concomitant]
     Dates: start: 20010615
  7. PRIMROSE OIL [Concomitant]
     Dates: start: 20010615
  8. SILYMARIN [Concomitant]
     Dates: start: 20010615
  9. SELENIUM TRACE METAL ADDITIVE [Concomitant]
     Dates: start: 20010615
  10. VITAMIN E [Concomitant]
     Dates: start: 20010615
  11. VITAMIN C [Concomitant]
     Dosage: DOSE REPORTED AS 2000 UNITS UNKNOWN
     Dates: start: 20010615
  12. BETA CAROTENE [Concomitant]
     Dates: start: 20010615

REACTIONS (1)
  - GLOMERULONEPHRITIS MEMBRANOUS [None]
